FAERS Safety Report 9607525 (Version 1)
Quarter: 2013Q4

REPORT INFORMATION
  Report Type: Spontaneous
  Country: US (occurrence: None)
  Receive Date: 20131007
  Receipt Date: 20131007
  Transmission Date: 20140711
  Serious: Yes (Death, Hospitalization)
  Sender: FDA-Public Use
  Company Number: AMAG201300165

PATIENT
  Age: 65 Year
  Sex: Female

DRUGS (10)
  1. FERAHEME [Suspect]
     Route: 042
     Dates: start: 20130910, end: 20130910
  2. RIFAXIMIN (RIFAXIMIN) [Concomitant]
  3. LASIX (FUROSEMIDE SODIUM) [Concomitant]
  4. OMEPRAZOLE (OMEPRAZOLE) [Concomitant]
  5. FERROUS SULFATE (FERROUS SULFATE) [Concomitant]
  6. NEURONTIN (GABAPENTIN) [Concomitant]
  7. MULTIVITAMIN (VITAMINS NOS) [Concomitant]
  8. LACTULOSE (LACTULOSE) [Concomitant]
  9. KLOR-CON (POTASSIUM CHLORIDE) [Concomitant]
  10. SPIRONOLACTONE (SPIRONOLACTONE) [Suspect]

REACTIONS (3)
  - Septic shock [None]
  - Pleural effusion [None]
  - Cellulitis [None]
